FAERS Safety Report 6665517-8 (Version None)
Quarter: 2010Q2

REPORT INFORMATION
  Report Type: 
  Country: None (occurrence: None)
  Receive Date: 20100402
  Receipt Date: 20100330
  Transmission Date: 20101027
  Serious: No
  Sender: FDA-Public Use
  Company Number: US-JNJFOC-20100303128

PATIENT
  Sex: Female
  Weight: 80.74 kg

DRUGS (3)
  1. DURAGESIC-100 [Suspect]
     Indication: PAIN
     Dosage: 100UG/HR+50UG/HR
     Route: 062
  2. DURAGESIC-100 [Suspect]
     Dosage: 100UG/HR 50UG/HR
     Route: 062
  3. HYDROCODONE [Concomitant]
     Indication: PAIN
     Dosage: 2-3 PER DAY AS NEEDED
     Route: 048

REACTIONS (3)
  - LETHARGY [None]
  - PAIN [None]
  - WRONG TECHNIQUE IN DRUG USAGE PROCESS [None]
